FAERS Safety Report 20110025 (Version 1)
Quarter: 2021Q4

REPORT INFORMATION
  Report Type: Spontaneous
  Country: IT (occurrence: IT)
  Receive Date: 20211124
  Receipt Date: 20211124
  Transmission Date: 20220304
  Serious: Yes (Other)
  Sender: FDA-Public Use
  Company Number: None

PATIENT
  Age: 41 Year
  Sex: Female

DRUGS (2)
  1. TAVOR (LORAZEPAM) [Suspect]
     Active Substance: LORAZEPAM
     Dosage: 10 MG, FREQ:{TOTAL};
     Route: 048
     Dates: start: 20211018, end: 20211018
  2. CHLORPROMAZINE HYDROCHLORIDE [Suspect]
     Active Substance: CHLORPROMAZINE HYDROCHLORIDE
     Dosage: 50 MG, FREQ:{TOTAL};
     Route: 048
     Dates: start: 20211018, end: 20211018

REACTIONS (3)
  - Toxicity to various agents [Recovering/Resolving]
  - Abdominal pain [Recovering/Resolving]
  - Drug abuse [Unknown]

NARRATIVE: CASE EVENT DATE: 20211018
